FAERS Safety Report 17508572 (Version 1)
Quarter: 2020Q1

REPORT INFORMATION
  Report Type: Spontaneous
  Country: RU (occurrence: RU)
  Receive Date: 20200306
  Receipt Date: 20200306
  Transmission Date: 20200409
  Serious: Yes (Hospitalization)
  Sender: FDA-Public Use
  Company Number: RU-TEVA-2020-RU-1193414

PATIENT
  Age: 35 Year
  Sex: Male

DRUGS (1)
  1. TOPSAVER [Suspect]
     Active Substance: TOPIRAMATE
     Dosage: 750 MILLIGRAM DAILY;
     Route: 048
     Dates: start: 20190210, end: 20190210

REACTIONS (3)
  - Tachycardia [Recovering/Resolving]
  - Disorientation [Recovering/Resolving]
  - Aggression [Recovering/Resolving]

NARRATIVE: CASE EVENT DATE: 20190210
